FAERS Safety Report 4412338-2 (Version None)
Quarter: 2004Q3

REPORT INFORMATION
  Report Type: 
  Country: None (occurrence: None)
  Receive Date: 20040730
  Receipt Date: 20040729
  Transmission Date: 20050211
  Serious: Yes (Death, Life-Threatening, Disabling)
  Sender: FDA-Public Use
  Company Number: CA-MERCK-0407CAN00143

PATIENT
  Age: 71 Year
  Sex: Male

DRUGS (7)
  1. AMLODIPINE BESYLATE [Concomitant]
     Route: 065
     Dates: start: 20010613
  2. VASOTEC [Concomitant]
     Route: 065
     Dates: start: 19980507
  3. ZETIA [Suspect]
     Indication: HYPERLIPIDAEMIA
     Route: 048
     Dates: start: 20040605, end: 20040715
  4. HYDROCHLOROTHIAZIDE [Concomitant]
     Route: 065
     Dates: start: 20010514
  5. MELOXICAM [Concomitant]
     Route: 065
     Dates: start: 20031104
  6. OXAZEPAM [Concomitant]
     Route: 065
     Dates: start: 20011004
  7. ZOCOR [Concomitant]
     Route: 065
     Dates: start: 19981006

REACTIONS (2)
  - FALL [None]
  - HEAD INJURY [None]
